FAERS Safety Report 9189460 (Version 1)
Quarter: 2013Q1

REPORT INFORMATION
  Report Type: Spontaneous
  Country: US (occurrence: None)
  Receive Date: 20130322
  Receipt Date: 20130322
  Transmission Date: 20140127
  Serious: Yes (Life-Threatening, Hospitalization, Disabling, Other)
  Sender: FDA-Public Use
  Company Number: None

PATIENT
  Age: 60 Year
  Sex: Male
  Weight: 108.86 kg

DRUGS (1)
  1. TESTOSTERONE ENANTHATE [Suspect]
     Indication: BLOOD TESTOSTERONE DECREASED
     Dosage: 200 MG SHOT EVERY 2 WEEKS
     Route: 058
     Dates: start: 20120713, end: 20130207

REACTIONS (5)
  - Atrial fibrillation [None]
  - Atrioventricular block [None]
  - Night sweats [None]
  - Heart rate increased [None]
  - Hypertension [None]
